FAERS Safety Report 16482292 (Version 3)
Quarter: 2019Q3

REPORT INFORMATION
  Report Type: Report from Study
  Country: US (occurrence: US)
  Receive Date: 20190627
  Receipt Date: 20190723
  Transmission Date: 20191004
  Serious: No
  Sender: FDA-Public Use
  Company Number: PHEH2019US026809

PATIENT
  Sex: Female

DRUGS (1)
  1. COSENTYX [Suspect]
     Active Substance: SECUKINUMAB
     Indication: PRODUCT USED FOR UNKNOWN INDICATION
     Dosage: UNK
     Route: 065

REACTIONS (6)
  - Laryngitis [Unknown]
  - Chills [Recovering/Resolving]
  - Cystitis [Recovered/Resolved]
  - Fungal infection [Recovered/Resolved]
  - Pyrexia [Recovering/Resolving]
  - Sinusitis [Recovered/Resolved]
